FAERS Safety Report 18225247 (Version 1)
Quarter: 2020Q3

REPORT INFORMATION
  Report Type: Spontaneous
  Country: CN (occurrence: CN)
  Receive Date: 20200903
  Receipt Date: 20200903
  Transmission Date: 20201103
  Serious: Yes (Hospitalization, Other)
  Sender: FDA-Public Use
  Company Number: CN-ACCORD-194802

PATIENT
  Age: 80 Year
  Sex: Male

DRUGS (11)
  1. BENAPRIL [Concomitant]
     Dosage: 10MG PO QD
     Route: 048
  2. INSULIN [Concomitant]
     Active Substance: INSULIN NOS
     Indication: TYPE 2 DIABETES MELLITUS
  3. FUROSEMIDE. [Concomitant]
     Active Substance: FUROSEMIDE
     Dosage: 20MG PO QD
     Route: 048
  4. SPIRONOLACTONE. [Concomitant]
     Active Substance: SPIRONOLACTONE
     Dosage: 40MG PO QD
     Route: 048
  5. DIGOXIN. [Concomitant]
     Active Substance: DIGOXIN
     Dosage: 0.125MG PO QD
     Route: 048
  6. WARFARIN [Concomitant]
     Active Substance: WARFARIN
     Dosage: 2.5MG PO QD
     Route: 048
  7. ATORVASTATIN/ATORVASTATIN CALCIUM [Suspect]
     Active Substance: ATORVASTATIN CALCIUM
     Indication: PRODUCT USED FOR UNKNOWN INDICATION
     Dosage: 20MG PO AT NIGHT
     Route: 048
  8. METOPROLOL. [Concomitant]
     Active Substance: METOPROLOL
     Dosage: 12.5MG PO QD
     Route: 048
  9. CEFATHIAMIDINE [Concomitant]
     Active Substance: CEFTRIAXONE SODIUM
     Indication: SUPERINFECTION
     Dosage: 2G IVGTT Q8H
     Route: 042
  10. ACETYLSALICYLIC ACID [Concomitant]
     Active Substance: ASPIRIN
     Dosage: 100MG PO QD
     Route: 048
  11. AMBROXOL [Concomitant]
     Active Substance: AMBROXOL
     Indication: BRONCHITIS CHRONIC
     Dosage: 30MG IVGTT QD
     Route: 042

REACTIONS (2)
  - Rhabdomyolysis [Unknown]
  - Hyperkalaemia [Recovered/Resolved]
